FAERS Safety Report 8163256-8 (Version None)
Quarter: 2012Q1

REPORT INFORMATION
  Report Type: 
  Country: None (occurrence: None)
  Receive Date: 20120224
  Receipt Date: 20110308
  Transmission Date: 20120608
  Serious: No
  Sender: FDA-Public Use
  Company Number: US-PFIZER INC-K201100248

PATIENT
  Age: 32 Year
  Sex: Female
  Weight: 72.562 kg

DRUGS (3)
  1. FLECTOR [Suspect]
     Indication: ARTHRALGIA
     Dosage: 1 PATCH, Q12H
     Route: 061
     Dates: start: 20110201, end: 20110201
  2. DEPO-PROVERA [Concomitant]
     Indication: CONTRACEPTION
     Route: 030
  3. FLECTOR [Suspect]
     Indication: CHONDROMALACIA

REACTIONS (1)
  - APPLICATION SITE HYPERAESTHESIA [None]
